FAERS Safety Report 4510150-7 (Version None)
Quarter: 2004Q4

REPORT INFORMATION
  Report Type: 
  Country: None (occurrence: None)
  Receive Date: 20041119
  Receipt Date: 20041105
  Transmission Date: 20050328
  Serious: Yes (Death, Hospitalization, Other)
  Sender: FDA-Public Use
  Company Number: FR-2004-032264

PATIENT
  Age: 72 Year
  Sex: Male
  Weight: 65 kg

DRUGS (5)
  1. CAMPATH [Suspect]
     Indication: CHRONIC LYMPHOCYTIC LEUKAEMIA RECURRENT
     Dosage: 30 MG, SUBCUTANEOUS
     Route: 058
     Dates: start: 20030915, end: 20031124
  2. FLUDARA [Suspect]
     Indication: CHRONIC LYMPHOCYTIC LEUKAEMIA
     Dosage: 25 MG/M2, 1X/DAY3DAYS, INTRAVENOUS
     Route: 042
     Dates: start: 20030301, end: 20030601
  3. CYCLOPHOSPHAMIDE [Suspect]
     Indication: CHRONIC LYMPHOCYTIC LEUKAEMIA
     Dosage: 250 MG/M2, 1X/DAYX3 DAYS, INTRAVENOUS
     Route: 042
     Dates: start: 20030301, end: 20030601
  4. BACTRIM DS [Concomitant]
  5. VALACYCLOVIR HCL [Concomitant]

REACTIONS (15)
  - CHRONIC LYMPHOCYTIC LEUKAEMIA RECURRENT [None]
  - DRUG INEFFECTIVE [None]
  - EPSTEIN-BARR VIRUS INFECTION [None]
  - FEBRILE NEUTROPENIA [None]
  - GASTROINTESTINAL NECROSIS [None]
  - INTESTINAL PERFORATION [None]
  - LUNG INFECTION [None]
  - LYMPHOCYTOSIS [None]
  - LYMPHOPROLIFERATIVE DISORDER [None]
  - NECROSIS ISCHAEMIC [None]
  - PANCYTOPENIA [None]
  - PERITONITIS [None]
  - SEPSIS [None]
  - SPLENOMEGALY [None]
  - URINARY TRACT INFECTION [None]
